FAERS Safety Report 7832490-6 (Version None)
Quarter: 2011Q4

REPORT INFORMATION
  Report Type: 
  Country: None (occurrence: None)
  Receive Date: 20111023
  Receipt Date: 20111010
  Transmission Date: 20120403
  Serious: Yes (Hospitalization, Other)
  Sender: FDA-Public Use
  Company Number: US-ELI_LILLY_AND_COMPANY-US201108001266

PATIENT
  Sex: Female
  Weight: 72.562 kg

DRUGS (13)
  1. FORTEO [Suspect]
     Dosage: 20 UG, QD
  2. BACLOFEN [Concomitant]
     Dosage: 10 MG, QID
  3. REQUIP [Concomitant]
     Indication: DYSKINESIA
  4. PREVACID [Concomitant]
     Dosage: 30 MG, QD
  5. FORTEO [Suspect]
     Indication: OSTEOPOROSIS
     Dosage: 20 UG, QD
     Dates: start: 20110720, end: 20110720
  6. FORTEO [Suspect]
     Dosage: 20 UG, QD
     Route: 065
     Dates: start: 20110818
  7. CYMBALTA [Concomitant]
     Indication: DEPRESSION
     Dosage: 90 MG, QD
  8. NEURONTIN [Concomitant]
     Dosage: 600 MG, QID
  9. AMBIEN [Concomitant]
     Indication: SLEEP DISORDER
     Dosage: 10 MG, QD
  10. DIAZEPAM [Concomitant]
     Indication: ANXIETY
  11. PRILOSEC [Concomitant]
     Indication: GASTROOESOPHAGEAL REFLUX DISEASE
  12. FLEXERIL [Concomitant]
     Dosage: 10 MG, TID
  13. PHENERGAN HCL [Concomitant]

REACTIONS (19)
  - PSYCHIATRIC SYMPTOM [None]
  - DYSPNOEA [None]
  - DYSPEPSIA [None]
  - BURNING SENSATION [None]
  - HYPOAESTHESIA [None]
  - MALAISE [None]
  - PARAESTHESIA [None]
  - FATIGUE [None]
  - DRUG DOSE OMISSION [None]
  - NAUSEA [None]
  - DYSPHONIA [None]
  - TREMOR [None]
  - DRY MOUTH [None]
  - TENSION [None]
  - DIARRHOEA [None]
  - SUICIDAL IDEATION [None]
  - PNEUMONIA [None]
  - IRRITABILITY [None]
  - HEADACHE [None]
